FAERS Safety Report 9746344 (Version 1)
Quarter: 2013Q4

REPORT INFORMATION
  Report Type: Spontaneous
  Country: None (occurrence: None)
  Receive Date: 20131205
  Receipt Date: 20131205
  Transmission Date: 20140711
  Serious: Yes (Hospitalization, Other)
  Sender: FDA-Public Use
  Company Number: 2013/214

PATIENT
  Age: 66 Year
  Sex: Male
  Weight: 55 kg

DRUGS (4)
  1. TERBINAFINE (NO PREF. NAME) 250 MG [Suspect]
     Indication: ONYCHOMYCOSIS
     Dates: start: 20130924, end: 20131114
  2. DEXTROMETHORPHAN HYDROBROMIDE [Concomitant]
  3. GUAIPHENESIN AND MENTHOL (COVANIA BRONCHIAL) [Concomitant]
  4. IBUPROFEN [Concomitant]

REACTIONS (2)
  - Pancreatitis [None]
  - Liver function test abnormal [None]
